FAERS Safety Report 23459221 (Version 1)
Quarter: 2024Q1

REPORT INFORMATION
  Report Type: Other
  Country: CA (occurrence: CA)
  Receive Date: 20240131
  Receipt Date: 20240131
  Transmission Date: 20240410
  Serious: Yes (Death)
  Sender: FDA-Public Use
  Company Number: CA-BoehringerIngelheim-2024-BI-004136

PATIENT
  Age: 89 Year
  Sex: Male

DRUGS (1)
  1. TENECTEPLASE [Suspect]
     Active Substance: TENECTEPLASE
     Indication: Ischaemic stroke
     Route: 042
     Dates: start: 20220112

REACTIONS (3)
  - Cerebral haemorrhage [Fatal]
  - Generalised tonic-clonic seizure [Fatal]
  - Epistaxis [Fatal]

NARRATIVE: CASE EVENT DATE: 20220113
